FAERS Safety Report 5823479-7 (Version None)
Quarter: 2008Q3

REPORT INFORMATION
  Report Type: 
  Country: None (occurrence: None)
  Receive Date: 20080725
  Receipt Date: 20080715
  Transmission Date: 20090109
  Serious: Yes (Hospitalization, Other)
  Sender: FDA-Public Use
  Company Number: FR-ELI_LILLY_AND_COMPANY-FR200804005957

PATIENT
  Age: 66 Year
  Sex: Female
  Weight: 55 kg

DRUGS (5)
  1. FORTEO [Suspect]
     Indication: OSTEOPOROSIS
     Dosage: 20 UG, DAILY (1/D)
     Route: 058
     Dates: start: 20071004, end: 20080401
  2. DELURSAN [Concomitant]
     Indication: CHOLESTASIS
     Dosage: UNK, UNKNOWN
     Route: 048
     Dates: start: 20070101
  3. ACETAMINOPHEN [Concomitant]
     Indication: PAIN
     Dosage: UNK, UNKNOWN
     Route: 048
  4. CALCIDOSE [Concomitant]
     Indication: OSTEOPOROSIS
     Dosage: UNK, UNKNOWN
     Route: 048
  5. STEROGYL [Concomitant]
     Indication: VITAMIN D DEFICIENCY
     Dosage: UNK, UNKNOWN
     Route: 030

REACTIONS (2)
  - CHOLESTASIS [None]
  - JAUNDICE [None]
